FAERS Safety Report 7013502-9 (Version None)
Quarter: 2010Q3

REPORT INFORMATION
  Report Type: 
  Country: None (occurrence: None)
  Receive Date: 20100924
  Receipt Date: 20100914
  Transmission Date: 20110219
  Serious: Yes (Other)
  Sender: FDA-Public Use
  Company Number: US-BAYER-201031883NA

PATIENT
  Age: 48 Year
  Sex: Female

DRUGS (3)
  1. MAGNEVIST [Suspect]
     Indication: NUCLEAR MAGNETIC RESONANCE IMAGING
     Dosage: TOTAL DAILY DOSE: 10 ML  UNIT DOSE: 10 ML
     Route: 042
     Dates: start: 20090715, end: 20090715
  2. VOLTAREN [Concomitant]
  3. BACTRIM DS [Concomitant]

REACTIONS (5)
  - BLOOD PRESSURE INCREASED [None]
  - HEAD DISCOMFORT [None]
  - HEART RATE INCREASED [None]
  - NAUSEA [None]
  - VOMITING [None]
